FAERS Safety Report 6604117-2 (Version None)
Quarter: 2010Q1

REPORT INFORMATION
  Report Type: 
  Country: None (occurrence: None)
  Receive Date: 20100226
  Receipt Date: 20090528
  Transmission Date: 20100710
  Serious: No
  Sender: FDA-Public Use
  Company Number: A0787096A

PATIENT
  Age: 38 Year
  Sex: Female

DRUGS (4)
  1. LAMICTAL CD [Suspect]
     Dosage: 200MG PER DAY
     Route: 048
     Dates: start: 20060801
  2. PARNATE [Concomitant]
  3. AMBIEN [Concomitant]
  4. VITAMINS [Concomitant]

REACTIONS (2)
  - RASH [None]
  - RASH PAPULAR [None]
